FAERS Safety Report 6449734-8 (Version None)
Quarter: 2009Q4

REPORT INFORMATION
  Report Type: 
  Country: None (occurrence: None)
  Receive Date: 20091120
  Receipt Date: 20091109
  Transmission Date: 20100525
  Serious: Yes (Hospitalization)
  Sender: FDA-Public Use
  Company Number: TW-WATSON-2009-09624

PATIENT
  Age: 44 Year
  Sex: Male

DRUGS (2)
  1. DISULFIRAM (WATSON LABORATORIES) [Suspect]
     Indication: ALCOHOL DETOXIFICATION
     Dosage: 200 MG, DAILY
     Route: 048
  2. COLCHICINE (WATSON LABORATORIES) [Suspect]
     Indication: GOUTY ARTHRITIS
     Dosage: 0.5 MG, BID
     Route: 048

REACTIONS (7)
  - ANAEMIA [None]
  - DRUG TOXICITY [None]
  - HEPATIC ENZYME INCREASED [None]
  - INHIBITORY DRUG INTERACTION [None]
  - RASH ERYTHEMATOUS [None]
  - SKIN EXFOLIATION [None]
  - WHITE BLOOD CELL COUNT DECREASED [None]
